FAERS Safety Report 18908297 (Version 1)
Quarter: 2021Q1

REPORT INFORMATION
  Report Type: Other
  Country: BG (occurrence: BG)
  Receive Date: 20210218
  Receipt Date: 20210218
  Transmission Date: 20210420
  Serious: Yes (Hospitalization)
  Sender: FDA-Public Use
  Company Number: BG-ROCHE-2766715

PATIENT
  Age: 75 Year
  Sex: Female
  Weight: 68 kg

DRUGS (7)
  1. PROPRANOLOL [Concomitant]
     Active Substance: PROPRANOLOL HYDROCHLORIDE
     Indication: TREMOR
     Dosage: ONGOING = CHECKED
     Dates: start: 20201002
  2. CLOBEDERM [Concomitant]
     Indication: NEURODERMATITIS
     Dosage: ONGOING = CHECKED
     Dates: start: 20200328
  3. AERIUS [Concomitant]
     Indication: NEURODERMATITIS
     Dosage: ONGOING = CHECKED
     Dates: start: 20200328
  4. ATARAX [Concomitant]
     Active Substance: HYDROXYZINE HYDROCHLORIDE
     Indication: NEURODERMATITIS
     Dosage: ONGOING = CHECKED
     Dates: start: 20200310
  5. TRASTUZUMAB. [Suspect]
     Active Substance: TRASTUZUMAB
     Indication: BREAST CANCER
     Dosage: MOST RECENT DOSE PRIOR TO THE EVENT: 29/NOV/2018
     Route: 042
     Dates: start: 20181102, end: 20181102
  6. BERLIPRIL [Concomitant]
     Active Substance: ENALAPRIL MALEATE
     Dosage: ONGOING = CHECKED
     Dates: start: 20120615
  7. DOCETAXEL. [Suspect]
     Active Substance: DOCETAXEL
     Indication: BREAST CANCER
     Dosage: MOST RECENT DOSE PRIOR TO THE EVENT: 29/NOV/2018, 04/OCT/2019
     Route: 042
     Dates: start: 20181102

REACTIONS (1)
  - Femoral neck fracture [Recovering/Resolving]

NARRATIVE: CASE EVENT DATE: 20201227
